FAERS Safety Report 12989290 (Version 1)
Quarter: 2016Q4

REPORT INFORMATION
  Report Type: Spontaneous
  Country: FR (occurrence: FR)
  Receive Date: 20161201
  Receipt Date: 20161201
  Transmission Date: 20170207
  Serious: Yes (Life-Threatening, Hospitalization, Other)
  Sender: FDA-Public Use
  Company Number: FR-CLINIGEN GROUP PLC/ CLINIGEN HEALTHCARE LTD-E2B_00000943

PATIENT
  Age: 52 Year
  Sex: Male
  Weight: 90 kg

DRUGS (10)
  1. ETHYOL [Suspect]
     Active Substance: AMIFOSTINE
     Indication: SQUAMOUS CELL CARCINOMA
     Route: 042
     Dates: start: 20050214, end: 20050317
  2. CISPLATIN. [Concomitant]
     Active Substance: CISPLATIN
     Indication: SQUAMOUS CELL CARCINOMA
     Dates: start: 20050221, end: 20050221
  3. SOLU-MEDROL [Concomitant]
     Active Substance: METHYLPREDNISOLONE SODIUM SUCCINATE
     Route: 042
  4. CISPLATIN. [Concomitant]
     Active Substance: CISPLATIN
     Indication: SQUAMOUS CELL CARCINOMA
     Route: 042
     Dates: start: 20050214, end: 20050214
  5. ZOPHREN [Concomitant]
     Active Substance: ONDANSETRON
     Route: 042
     Dates: start: 20050214, end: 20050318
  6. CISPLATIN. [Concomitant]
     Active Substance: CISPLATIN
     Indication: SQUAMOUS CELL CARCINOMA
     Dates: start: 20050314, end: 20050314
  7. CISPLATIN. [Concomitant]
     Active Substance: CISPLATIN
     Indication: SQUAMOUS CELL CARCINOMA
     Dates: start: 20050228, end: 20050228
  8. CISPLATIN. [Concomitant]
     Active Substance: CISPLATIN
     Indication: SQUAMOUS CELL CARCINOMA
     Dates: start: 20050307, end: 20050307
  9. RADIATION THERAPY [Concomitant]
     Active Substance: RADIATION THERAPY
     Indication: SQUAMOUS CELL CARCINOMA
     Dates: start: 20050214
  10. PRIMPERAN [Concomitant]
     Active Substance: METOCLOPRAMIDE HYDROCHLORIDE
     Dosage: ONE DOSE FORM
     Dates: start: 20050308, end: 20050314

REACTIONS (10)
  - Atelectasis [Unknown]
  - Toxic epidermal necrolysis [Recovering/Resolving]
  - Haemoglobin abnormal [Unknown]
  - Rash [Unknown]
  - Dysphagia [Unknown]
  - Renal failure [Unknown]
  - Leukopenia [Unknown]
  - Lymphopenia [Unknown]
  - Staphylococcal bacteraemia [Unknown]
  - Thrombocytopenia [Unknown]

NARRATIVE: CASE EVENT DATE: 20050315
